FAERS Safety Report 6538832-6 (Version None)
Quarter: 2010Q1

REPORT INFORMATION
  Report Type: 
  Country: None (occurrence: None)
  Receive Date: 20100115
  Receipt Date: 20100107
  Transmission Date: 20100710
  Serious: Yes (Hospitalization)
  Sender: FDA-Public Use
  Company Number: GB-MILLENNIUM PHARMACEUTICALS, INC.-2010-00723

PATIENT

DRUGS (14)
  1. VELCADE [Suspect]
     Indication: MULTIPLE MYELOMA
     Dosage: 1.7 MG, UNK
     Route: 042
     Dates: start: 20090324, end: 20090825
  2. DEXAMETHASONE TAB [Suspect]
     Indication: MULTIPLE MYELOMA
     Dosage: 20 MG, UNK
     Route: 048
     Dates: start: 20090324, end: 20090825
  3. REVLIMID [Suspect]
     Indication: MULTIPLE MYELOMA
     Dosage: 10 MG, UNK
     Route: 048
     Dates: start: 20090623, end: 20090827
  4. GLICLAZIDE [Concomitant]
     Indication: TYPE 2 DIABETES MELLITUS
     Dosage: 80 MG, UNK
     Route: 048
     Dates: start: 20061201
  5. MOVICOL                            /01053601/ [Concomitant]
     Indication: DIVERTICULITIS
     Dosage: UNK
     Route: 048
     Dates: start: 20020101
  6. ORAMORPH SR [Concomitant]
     Indication: MULTIPLE MYELOMA
     Dosage: 10 MG, UNK
     Route: 048
     Dates: start: 20060701
  7. SODIUM CLODRONATE [Concomitant]
     Indication: MULTIPLE MYELOMA
     Dosage: 1.6 G, UNK
     Route: 048
     Dates: start: 20090316, end: 20091229
  8. DOMPERIDONE [Concomitant]
     Indication: NAUSEA
     Dosage: 20 MG, UNK
     Route: 048
     Dates: start: 20090324
  9. OMEPRAZOLE [Concomitant]
     Indication: ABDOMINAL DISCOMFORT
     Dosage: 20 MG, UNK
     Route: 048
     Dates: start: 20090324
  10. ZOPLICONE [Concomitant]
     Indication: INSOMNIA
     Dosage: 7.5 MG, UNK
     Route: 048
  11. METFORMIN HYDROCHLORIDE [Concomitant]
     Indication: DIABETES MELLITUS
     Dosage: 1 G, UNK
     Route: 048
     Dates: start: 20090501
  12. ALBUTEROL [Concomitant]
     Dosage: 2.5 MG, UNK
     Dates: start: 20090827
  13. MORPHINE SULPHATE [Concomitant]
     Dosage: 40 MG, UNK
     Route: 048
     Dates: start: 20090804
  14. ATROVENT [Concomitant]
     Dosage: 500 UG, UNK
     Dates: start: 20090827

REACTIONS (2)
  - HYPOCALCAEMIA [None]
  - HYPOMAGNESAEMIA [None]
